FAERS Safety Report 6697185-3 (Version None)
Quarter: 2010Q2

REPORT INFORMATION
  Report Type: 
  Country: None (occurrence: None)
  Receive Date: 20100422
  Receipt Date: 20100409
  Transmission Date: 20101027
  Serious: Yes (Hospitalization)
  Sender: FDA-Public Use
  Company Number: JPI-P-010294

PATIENT
  Age: 48 Year
  Sex: Female
  Weight: 80.2867 kg

DRUGS (14)
  1. XYREM [Suspect]
     Indication: FIBROMYALGIA
     Dosage: ORAL, 6 GM (3 GM, 2 IN 1 D), ORAL
     Route: 048
     Dates: start: 20100101, end: 20100101
  2. XYREM [Suspect]
     Indication: NARCOLEPSY
     Dosage: ORAL, 6 GM (3 GM, 2 IN 1 D), ORAL
     Route: 048
     Dates: start: 20100101, end: 20100101
  3. XYREM [Suspect]
     Indication: FIBROMYALGIA
     Dosage: ORAL, 6 GM (3 GM, 2 IN 1 D), ORAL
     Route: 048
     Dates: start: 20100101
  4. XYREM [Suspect]
     Indication: NARCOLEPSY
     Dosage: ORAL, 6 GM (3 GM, 2 IN 1 D), ORAL
     Route: 048
     Dates: start: 20100101
  5. TOPIRAMATE [Concomitant]
  6. ACYCLOVIR [Concomitant]
  7. MAGNESIUM [Concomitant]
  8. LAMOTRIGINE [Concomitant]
  9. DULOXETINE HYDROCHLORIDE [Concomitant]
  10. SUMATRIPTAN SUCCINATE [Concomitant]
  11. FIBER [Concomitant]
  12. DICLOFENAC [Concomitant]
  13. TIZANIDINE HCL [Concomitant]
  14. OXYCODONE AND ACETAMINOPHEN [Concomitant]

REACTIONS (3)
  - BLOOD PRESSURE INCREASED [None]
  - CHEST PAIN [None]
  - OESOPHAGEAL DISORDER [None]
